FAERS Safety Report 24735355 (Version 2)
Quarter: 2025Q1

REPORT INFORMATION
  Report Type: Report from Study
  Country: US (occurrence: US)
  Receive Date: 20241215
  Receipt Date: 20250120
  Transmission Date: 20250408
  Serious: No
  Sender: SUNOVION
  Company Number: US-SMPA-2024SPA005641AA

PATIENT

DRUGS (2)
  1. ORGOVYX [Suspect]
     Active Substance: RELUGOLIX
     Indication: Prostate cancer
     Route: 048
  2. ORGOVYX [Suspect]
     Active Substance: RELUGOLIX
     Dosage: 120 MG, QD
     Route: 048
     Dates: start: 20240820

REACTIONS (5)
  - Liver disorder [Unknown]
  - Glucose tolerance impaired [Unknown]
  - Infection [Unknown]
  - Urinary tract infection [Unknown]
  - Blood cholesterol increased [Unknown]
